FAERS Safety Report 8223853-8 (Version None)
Quarter: 2012Q1

REPORT INFORMATION
  Report Type: 
  Country: None (occurrence: None)
  Receive Date: 20120312
  Receipt Date: 20120302
  Transmission Date: 20120608
  Serious: Yes (Other)
  Sender: FDA-Public Use
  Company Number: 2012SP012052

PATIENT
  Sex: Male
  Weight: 115.6672 kg

DRUGS (2)
  1. PEG-INTRON [Suspect]
     Indication: HEPATITIS C
  2. RIBAVIRIN [Suspect]
     Indication: HEPATITIS C

REACTIONS (10)
  - WEIGHT DECREASED [None]
  - ASTHENIA [None]
  - JOINT LOCK [None]
  - HYPONATRAEMIA [None]
  - FEELING ABNORMAL [None]
  - RED BLOOD CELL COUNT ABNORMAL [None]
  - DIZZINESS [None]
  - MUSCLE SPASMS [None]
  - SOMNOLENCE [None]
  - HYPOPHAGIA [None]
